FAERS Safety Report 8370728-X (Version None)
Quarter: 2012Q2

REPORT INFORMATION
  Report Type: 
  Country: None (occurrence: None)
  Receive Date: 20120518
  Receipt Date: 20120509
  Transmission Date: 20120825
  Serious: Yes (Disabling)
  Sender: FDA-Public Use
  Company Number: FR-ASTRAZENECA-2012SE30276

PATIENT
  Age: 690 Month
  Sex: Male

DRUGS (5)
  1. TENORMIN [Suspect]
     Route: 048
     Dates: start: 20050101
  2. PLAVIX [Suspect]
     Route: 048
     Dates: start: 20050101
  3. ATORVASTATIN [Suspect]
     Route: 048
     Dates: start: 20060101
  4. ATORVASTATIN [Suspect]
     Route: 048
     Dates: start: 19980101, end: 20050101
  5. ATORVASTATIN [Suspect]
     Route: 048
     Dates: start: 20050101, end: 20060101

REACTIONS (1)
  - TENDON RUPTURE [None]
